FAERS Safety Report 5460443-4 (Version None)
Quarter: 2007Q3

REPORT INFORMATION
  Report Type: 
  Country: None (occurrence: None)
  Receive Date: 20070919
  Receipt Date: 20070716
  Transmission Date: 20080115
  Serious: Yes (Other)
  Sender: FDA-Public Use
  Company Number: US-ASTRAZENECA-2007UW16466

PATIENT
  Sex: Female
  Weight: 60.9 kg

DRUGS (4)
  1. SEROQUEL [Suspect]
     Dosage: 100-200 MG
     Route: 048
  2. RISPERDAL [Concomitant]
  3. ZYPREXA [Concomitant]
  4. GEODON [Concomitant]

REACTIONS (1)
  - PANCREATITIS [None]
